FAERS Safety Report 24250352 (Version 1)
Quarter: 2024Q3

REPORT INFORMATION
  Report Type: Spontaneous
  Country: US (occurrence: None)
  Receive Date: 20240826
  Receipt Date: 20240826
  Transmission Date: 20241017
  Serious: Yes (unspecified)
  Sender: Public
  Company Number: None

PATIENT
  Age: 68 Year
  Sex: Female
  Weight: 79.38 kg

DRUGS (1)
  1. DUPIXENT [Suspect]
     Active Substance: DUPILUMAB
     Indication: Dermatitis atopic
     Dosage: 300 MG OTHER SUBCUTANEOUS
     Route: 058
     Dates: start: 20240626, end: 20240726

REACTIONS (8)
  - Adverse event [None]
  - Pain in extremity [None]
  - Pain in extremity [None]
  - Burning sensation [None]
  - Peripheral swelling [None]
  - Peripheral swelling [None]
  - Gait disturbance [None]
  - Rash [None]

NARRATIVE: CASE EVENT DATE: 20240726
